FAERS Safety Report 5235844-X (Version None)
Quarter: 2007Q1

REPORT INFORMATION
  Report Type: 
  Country: None (occurrence: None)
  Receive Date: 20070212
  Receipt Date: 20070201
  Transmission Date: 20070707
  Serious: Yes (Other)
  Sender: FDA-Public Use
  Company Number: US-JNJFOC-20070200414

PATIENT
  Sex: Female
  Weight: 61.24 kg

DRUGS (11)
  1. PREZISTA [Suspect]
     Indication: HIV INFECTION
     Route: 048
  2. NORVIR [Concomitant]
     Route: 065
  3. BACTRIM [Concomitant]
     Route: 065
  4. VERAPAMIL [Concomitant]
     Route: 065
  5. LEXAPRIL [Concomitant]
     Route: 065
  6. PREVACID [Concomitant]
     Route: 065
  7. ADVAIR DISKUS 100/50 [Concomitant]
     Route: 065
  8. ALBUTEROL [Concomitant]
     Route: 065
  9. SINGULAIR [Concomitant]
     Route: 065
  10. RESTORIL [Concomitant]
     Route: 065
  11. TRAZONIL [Concomitant]
     Route: 065

REACTIONS (1)
  - SWELLING FACE [None]
